FAERS Safety Report 19944504 (Version 1)
Quarter: 2021Q4

REPORT INFORMATION
  Report Type: Spontaneous
  Country: US (occurrence: US)
  Receive Date: 20211010
  Receipt Date: 20211010
  Transmission Date: 20220304
  Serious: No
  Sender: FDA-Public Use
  Company Number: None

PATIENT
  Age: 56 Year
  Sex: Female
  Weight: 74.25 kg

DRUGS (7)
  1. FAMOTIDINE [Suspect]
     Active Substance: FAMOTIDINE
     Indication: Gastrooesophageal reflux disease
     Dosage: ?          QUANTITY:1 TABLET(S);
     Route: 048
     Dates: start: 20210928, end: 20211006
  2. FAMOTIDINE [Suspect]
     Active Substance: FAMOTIDINE
     Indication: Gastrooesophageal reflux disease
     Dosage: ?          QUANTITY:1 TABLET(S);
     Route: 048
     Dates: start: 20210923, end: 20210928
  3. MULTI-VITAMIN [Concomitant]
     Active Substance: .ALPHA.-TOCOPHEROL ACETATE, DL-\ASCORBIC ACID\CYANOCOBALAMIN\FLUORIDE ION\FOLIC ACID\NIACIN\PYRIDOXI
  4. COENZYME Q10 [Concomitant]
     Active Substance: DIETARY SUPPLEMENT\UBIDECARENONE
  5. OMEGA-3 FATTY ACIDS [Concomitant]
     Active Substance: OMEGA-3 FATTY ACIDS
  6. VITAMIN D [Concomitant]
     Active Substance: VITAMIN D NOS
  7. MANGESIUM [Concomitant]

REACTIONS (7)
  - Anxiety [None]
  - Decreased appetite [None]
  - Depression [None]
  - Feeling abnormal [None]
  - Crying [None]
  - Restlessness [None]
  - Disturbance in attention [None]

NARRATIVE: CASE EVENT DATE: 20211006
